FAERS Safety Report 4430595-3 (Version None)
Quarter: 2004Q3

REPORT INFORMATION
  Report Type: 
  Country: None (occurrence: None)
  Receive Date: 20040819
  Receipt Date: 20040819
  Transmission Date: 20050211
  Serious: No
  Sender: FDA-Public Use
  Company Number: None

PATIENT
  Age: 77 Year
  Sex: Male
  Weight: 86.36 kg

DRUGS (5)
  1. CIPROFLOXACIN [Suspect]
     Indication: PREOPERATIVE CARE
     Dosage: PRE-OPERATIVE IUPD
     Dates: start: 20040729
  2. LACTATED RINGER'S [Concomitant]
  3. GLYCOPYSLATE [Concomitant]
  4. RANITIDINE [Concomitant]
  5. AEROSOL ALBUTEROL [Concomitant]

REACTIONS (2)
  - DEPRESSED LEVEL OF CONSCIOUSNESS [None]
  - TREMOR [None]
